FAERS Safety Report 9063925 (Version 2)
Quarter: 2013Q1

REPORT INFORMATION
  Report Type: Report from Study
  Country: US (occurrence: US)
  Receive Date: 20130128
  Receipt Date: 20130128
  Transmission Date: 20140127
  Serious: Yes (Other)
  Sender: FDA-Public Use
  Company Number: US-ROCHE-1050679

PATIENT
  Sex: Male
  Weight: 90.8 kg

DRUGS (18)
  1. XELODA [Suspect]
     Indication: BREAST CANCER
     Route: 048
     Dates: start: 20120205
  2. XELODA [Suspect]
     Route: 048
     Dates: start: 20120223
  3. XELODA [Suspect]
     Dosage: WEEK ON AND 1 WEEK OFF
     Route: 048
     Dates: start: 20120214
  4. GABAPENTIN [Concomitant]
     Route: 048
     Dates: start: 20101014
  5. CHOLECALCIFEROL [Concomitant]
     Dosage: VITAMIN D 1000 UNIT
     Route: 048
     Dates: start: 20101014
  6. SIMVASTATIN [Concomitant]
     Route: 048
     Dates: start: 20101014
  7. CYANOCOBALAMIN [Concomitant]
     Dosage: VITAMIN B-12
     Route: 065
     Dates: start: 20101014
  8. ECOTRIN [Concomitant]
     Route: 048
     Dates: start: 20101014
  9. FENOFIBRATE [Concomitant]
     Route: 048
     Dates: start: 20101014
  10. IBUPROFEN [Concomitant]
     Route: 048
     Dates: start: 20101014
  11. NITROSTAT [Concomitant]
     Dosage: PRN
     Route: 060
     Dates: start: 20101014
  12. HYDROCODONE BITARTRATE/ACETAMINOPHEN [Concomitant]
     Dosage: 5-325 MG, PRN
     Route: 065
     Dates: start: 20101014
  13. FUROSEMIDE [Concomitant]
     Route: 065
     Dates: start: 20110705
  14. ALDACTONE [Concomitant]
     Route: 065
     Dates: start: 20110705
  15. ASCORBIC ACID [Concomitant]
     Route: 065
     Dates: start: 20110705
  16. AFRIN NASAL SPRAY [Concomitant]
     Route: 065
     Dates: start: 20111025
  17. LEVOTHROID [Concomitant]
     Route: 065
     Dates: start: 20120103
  18. PRILOSEC [Concomitant]
     Route: 065
     Dates: start: 20120117

REACTIONS (5)
  - Diarrhoea [Not Recovered/Not Resolved]
  - Fatigue [Not Recovered/Not Resolved]
  - Wrong technique in drug usage process [Unknown]
  - Back pain [Not Recovered/Not Resolved]
  - Terminal state [Unknown]
